FAERS Safety Report 18319172 (Version 1)
Quarter: 2020Q3

REPORT INFORMATION
  Report Type: Spontaneous
  Country: US (occurrence: US)
  Receive Date: 20200928
  Receipt Date: 20200928
  Transmission Date: 20201103
  Serious: No
  Sender: FDA-Public Use
  Company Number: None

PATIENT
  Age: 68 Year
  Sex: Male
  Weight: 117 kg

DRUGS (13)
  1. LOSARTAN. [Concomitant]
     Active Substance: LOSARTAN
  2. PREDNISONE. [Concomitant]
     Active Substance: PREDNISONE
  3. CARVEDILOL. [Concomitant]
     Active Substance: CARVEDILOL
  4. LASIX [Concomitant]
     Active Substance: FUROSEMIDE
  5. POTASSIUM [Concomitant]
     Active Substance: POTASSIUM
  6. MEN^S ONE [Concomitant]
  7. OMEPRAZOLE. [Concomitant]
     Active Substance: OMEPRAZOLE
  8. COLCHICINE. [Concomitant]
     Active Substance: COLCHICINE
  9. NIFEDIPINE. [Concomitant]
     Active Substance: NIFEDIPINE
  10. LIPITOR [Concomitant]
     Active Substance: ATORVASTATIN CALCIUM
  11. METOPROLOL TARTRATE. [Suspect]
     Active Substance: METOPROLOL TARTRATE
     Indication: ATRIAL FIBRILLATION
     Dosage: ?          QUANTITY:1 TABLET(S);?
     Route: 048
  12. ELIQUIS [Suspect]
     Active Substance: APIXABAN
     Indication: ATRIAL FIBRILLATION
     Dosage: ?          QUANTITY:1 TABLET(S);?
     Route: 048
  13. HERBAL STOOL SOFTENER [Concomitant]

REACTIONS (15)
  - Ocular discomfort [None]
  - Vision blurred [None]
  - Pruritus [None]
  - Balance disorder [None]
  - Eye irritation [None]
  - Feeling drunk [None]
  - Feeling abnormal [None]
  - Strabismus [None]
  - Suicidal ideation [None]
  - Diplopia [None]
  - Lacrimation increased [None]
  - Periorbital swelling [None]
  - Insomnia [None]
  - Fear [None]
  - Eye pain [None]

NARRATIVE: CASE EVENT DATE: 20200914
